FAERS Safety Report 4498881-9 (Version None)
Quarter: 2004Q4

REPORT INFORMATION
  Report Type: 
  Country: None (occurrence: None)
  Receive Date: 20041108
  Receipt Date: 20041027
  Transmission Date: 20050328
  Serious: No
  Sender: FDA-Public Use
  Company Number: 2004-BP-10819MX

PATIENT
  Age: 57 Year
  Sex: Female

DRUGS (1)
  1. MICARDIS [Suspect]
     Indication: HYPERTENSION
     Dosage: 80 MG (80 MG, 1 TA O.D.)
     Route: 048
     Dates: start: 20030606, end: 20041018

REACTIONS (2)
  - IMMUNOLOGY TEST ABNORMAL [None]
  - RASH [None]
